FAERS Safety Report 9350714 (Version 2)
Quarter: 2013Q3

REPORT INFORMATION
  Report Type: Report from Study
  Country: FR (occurrence: FR)
  Receive Date: 20130617
  Receipt Date: 20130809
  Transmission Date: 20140515
  Serious: Yes (Death, Other)
  Sender: FDA-Public Use
  Company Number: FR-GENZYME-CAMP-1002860

PATIENT
  Sex: Male

DRUGS (1)
  1. CAMPATH [Suspect]
     Indication: CHRONIC LYMPHOCYTIC LEUKAEMIA
     Dosage: 30 MG/ML, 1X/W
     Route: 065
     Dates: end: 20130130

REACTIONS (4)
  - Disease progression [Fatal]
  - Richter^s syndrome [Fatal]
  - Respiratory distress [Unknown]
  - Generalised oedema [Unknown]
